FAERS Safety Report 7076797-1 (Version None)
Quarter: 2010Q4

REPORT INFORMATION
  Report Type: 
  Country: None (occurrence: None)
  Receive Date: 20101029
  Receipt Date: 20101029
  Transmission Date: 20110411
  Serious: Yes (Other)
  Sender: FDA-Public Use
  Company Number: None

PATIENT
  Age: 58 Year
  Sex: Male
  Weight: 81.6475 kg

DRUGS (5)
  1. SULINDAC [Suspect]
     Indication: ARTHRITIS
     Dosage: 200 MG BID PO
     Route: 048
     Dates: start: 20100504, end: 20100506
  2. LIPITOR [Concomitant]
  3. COREG [Concomitant]
  4. DIVAN [Concomitant]
  5. NIASPAN [Concomitant]

REACTIONS (1)
  - HYPERSENSITIVITY [None]
